FAERS Safety Report 25599343 (Version 1)
Quarter: 2025Q3

REPORT INFORMATION
  Report Type: Spontaneous
  Country: US (occurrence: US)
  Receive Date: 20250724
  Receipt Date: 20250724
  Transmission Date: 20251021
  Serious: Yes (Life-Threatening, Hospitalization)
  Sender: DR REDDYS
  Company Number: None

PATIENT
  Age: 77 Year
  Sex: Male

DRUGS (1)
  1. HEPARIN [Suspect]
     Active Substance: HEPARIN SODIUM
     Indication: Acute myocardial infarction
     Route: 065

REACTIONS (6)
  - Heparin-induced thrombocytopenia [Recovering/Resolving]
  - Peripheral artery occlusion [Recovering/Resolving]
  - Pulmonary embolism [Recovering/Resolving]
  - Arterial thrombosis [Recovering/Resolving]
  - Venous thrombosis [Recovering/Resolving]
  - Obstructive shock [Recovering/Resolving]
